FAERS Safety Report 6577949-7 (Version None)
Quarter: 2010Q1

REPORT INFORMATION
  Report Type: 
  Country: None (occurrence: None)
  Receive Date: 20100211
  Receipt Date: 20100203
  Transmission Date: 20100710
  Serious: Yes (Hospitalization)
  Sender: FDA-Public Use
  Company Number: US-GENZYME-FABR-1001187

PATIENT
  Sex: Male

DRUGS (1)
  1. FABRAZYME [Suspect]
     Indication: FABRY'S DISEASE
     Dosage: UNK
     Route: 042
     Dates: start: 20041222

REACTIONS (4)
  - ACCIDENT [None]
  - HERNIA [None]
  - PELVIC FRACTURE [None]
  - THERAPEUTIC RESPONSE UNEXPECTED [None]
